FAERS Safety Report 9590941 (Version 1)
Quarter: 2013Q4

REPORT INFORMATION
  Report Type: Spontaneous
  Country: US (occurrence: US)
  Receive Date: 20131003
  Receipt Date: 20131003
  Transmission Date: 20140711
  Serious: No
  Sender: FDA-Public Use
  Company Number: US-AMGEN-USASP2012074985

PATIENT
  Sex: Female

DRUGS (2)
  1. ENBREL [Suspect]
     Indication: PSORIASIS
     Dosage: UNK MG, 2 TIMES/WK
     Dates: start: 20100507, end: 201208
  2. HUMIRA [Concomitant]
     Dosage: UNK UNK, 2 TIMES/WK
     Dates: start: 201210

REACTIONS (2)
  - Inappropriate schedule of drug administration [Unknown]
  - Psoriasis [Unknown]
